FAERS Safety Report 16244241 (Version 1)
Quarter: 2019Q2

REPORT INFORMATION
  Report Type: Spontaneous
  Country: US (occurrence: US)
  Receive Date: 20190426
  Receipt Date: 20190426
  Transmission Date: 20190711
  Serious: Yes (Other)
  Sender: FDA-Public Use
  Company Number: US-EYEPOINT PHARMACEUTICALS, INC.-US-EYP-19-00027

PATIENT
  Sex: Male

DRUGS (1)
  1. DEXYCU [Suspect]
     Active Substance: DEXAMETHASONE
     Indication: POST PROCEDURAL INFLAMMATION
     Route: 031

REACTIONS (5)
  - Toxic anterior segment syndrome [Unknown]
  - Intraocular pressure increased [Unknown]
  - Incorrect dose administered [Unknown]
  - Corneal oedema [Unknown]
  - Device dislocation [Unknown]
